FAERS Safety Report 18491924 (Version 1)
Quarter: 2020Q4

REPORT INFORMATION
  Report Type: Spontaneous
  Country: US (occurrence: US)
  Receive Date: 20201111
  Receipt Date: 20201111
  Transmission Date: 20210114
  Serious: No
  Sender: FDA-Public Use
  Company Number: US-PFIZER INC-2020439789

PATIENT
  Age: 40 Year
  Sex: Female
  Weight: 70.76 kg

DRUGS (7)
  1. MEDROL [Suspect]
     Active Substance: METHYLPREDNISOLONE
     Indication: DRUG HYPERSENSITIVITY
     Dosage: UNK
     Dates: start: 202008
  2. MEDROL [Suspect]
     Active Substance: METHYLPREDNISOLONE
     Indication: ALLERGY PROPHYLAXIS
     Dosage: UNK
     Dates: start: 202008
  3. BENADRYL [Suspect]
     Active Substance: DIPHENHYDRAMINE HYDROCHLORIDE
     Indication: DRUG HYPERSENSITIVITY
     Dosage: UNK
     Dates: start: 202008
  4. FAMOTIDINE. [Concomitant]
     Active Substance: FAMOTIDINE
     Indication: DRUG HYPERSENSITIVITY
     Dosage: UNK
     Dates: start: 202008
  5. BENADRYL [Suspect]
     Active Substance: DIPHENHYDRAMINE HYDROCHLORIDE
     Indication: ALLERGY PROPHYLAXIS
     Dosage: UNK
     Dates: start: 202008
  6. BENADRYL [Suspect]
     Active Substance: DIPHENHYDRAMINE HYDROCHLORIDE
     Dosage: UNK
     Dates: start: 202009
  7. MEDROL [Suspect]
     Active Substance: METHYLPREDNISOLONE
     Dosage: UNK
     Dates: start: 202009

REACTIONS (1)
  - Drug ineffective [Unknown]

NARRATIVE: CASE EVENT DATE: 20200914
